FAERS Safety Report 25467449 (Version 1)
Quarter: 2025Q2

REPORT INFORMATION
  Report Type: Spontaneous
  Country: IT (occurrence: IT)
  Receive Date: 20250623
  Receipt Date: 20250623
  Transmission Date: 20250717
  Serious: Yes (Other)
  Sender: AUROBINDO
  Company Number: IT-002147023-NVSC2025IT040127

PATIENT
  Age: 32 Year
  Sex: Female
  Weight: 50 kg

DRUGS (5)
  1. EZETIMIBE [Suspect]
     Active Substance: EZETIMIBE
     Indication: Type IIa hyperlipidaemia
     Route: 065
  2. ROSUVASTATIN [Suspect]
     Active Substance: ROSUVASTATIN
     Indication: Type IIa hyperlipidaemia
     Route: 065
  3. LEQVIO [Suspect]
     Active Substance: INCLISIRAN SODIUM
     Indication: Type IIa hyperlipidaemia
     Route: 065
  4. LEQVIO [Suspect]
     Active Substance: INCLISIRAN SODIUM
     Route: 058
     Dates: start: 20220922, end: 20221222
  5. FOLIC ACID [Suspect]
     Active Substance: FOLIC ACID
     Indication: Prophylaxis
     Route: 065

REACTIONS (4)
  - Hypothyroidism [Unknown]
  - Delivery [Unknown]
  - Normal newborn [Unknown]
  - Maternal exposure before pregnancy [Unknown]
